FAERS Safety Report 11275678 (Version 1)
Quarter: 2015Q2

REPORT INFORMATION
  Report Type: Spontaneous
  Country: US (occurrence: None)
  Receive Date: 20150625
  Receipt Date: 20150625
  Transmission Date: 20150821
  Serious: Yes (Other)
  Sender: FDA-Public Use
  Company Number: PHEH2014US023298

PATIENT
  Age: 59 Year
  Sex: Male
  Weight: 64.9 kg

DRUGS (2)
  1. ZYKADIA [Suspect]
     Active Substance: CERITINIB
     Indication: NON-SMALL CELL LUNG CANCER
     Route: 048
     Dates: start: 20141024, end: 20141104
  2. XARELTO [Concomitant]
     Active Substance: RIVAROXABAN

REACTIONS (9)
  - Abdominal pain [None]
  - Blood alkaline phosphatase increased [None]
  - Liver function test abnormal [None]
  - Dyspepsia [None]
  - Alanine aminotransferase increased [None]
  - Decreased appetite [None]
  - Weight decreased [None]
  - Fatigue [None]
  - Aspartate aminotransferase increased [None]

NARRATIVE: CASE EVENT DATE: 20141024
